FAERS Safety Report 19155801 (Version 1)
Quarter: 2021Q2

REPORT INFORMATION
  Report Type: Spontaneous
  Country: BR (occurrence: BR)
  Receive Date: 20210419
  Receipt Date: 20210419
  Transmission Date: 20210717
  Serious: Yes (Other)
  Sender: FDA-Public Use
  Company Number: BR-TAKEDA-2021TUS023675

PATIENT
  Age: 71 Year
  Sex: Female

DRUGS (4)
  1. AZATHIOPRINE. [Concomitant]
     Active Substance: AZATHIOPRINE
     Indication: COLITIS ULCERATIVE
     Dosage: 150 MILLIGRAM
  2. MESALAZINE [Suspect]
     Active Substance: MESALAMINE
     Indication: COLITIS ULCERATIVE
     Dosage: 3.2 GRAM, QD
     Route: 065
  3. MESALAZINE [Suspect]
     Active Substance: MESALAMINE
     Dosage: 500 MILLIGRAM, QD
     Route: 065
  4. VEDOLIZUMAB [Suspect]
     Active Substance: VEDOLIZUMAB
     Indication: COLITIS ULCERATIVE
     Dosage: 150 MILLIGRAM
     Route: 065

REACTIONS (14)
  - Abdominal pain [Unknown]
  - Colitis [Unknown]
  - Rectal ulcer [Unknown]
  - Lung disorder [Unknown]
  - Rectal tenesmus [Unknown]
  - Hyperaemia [Unknown]
  - Diarrhoea [Unknown]
  - Dysmenorrhoea [Unknown]
  - Haematochezia [Unknown]
  - COVID-19 [Unknown]
  - Relapsing fever [Unknown]
  - Arthralgia [Unknown]
  - Weaning failure [Unknown]
  - Abnormal faeces [Unknown]

NARRATIVE: CASE EVENT DATE: 2015
